FAERS Safety Report 9840072 (Version 1)
Quarter: 2014Q1

REPORT INFORMATION
  Report Type: Spontaneous
  Country: CA (occurrence: CA)
  Receive Date: 20140124
  Receipt Date: 20140124
  Transmission Date: 20141002
  Serious: Yes (Other)
  Sender: FDA-Public Use
  Company Number: CA-SHIRE-ALL1-2014-00370

PATIENT
  Age: 13 Year
  Sex: Male
  Weight: 38.1 kg

DRUGS (3)
  1. VYVANSE [Suspect]
     Indication: PRODUCT USED FOR UNKNOWN INDICATION
     Dosage: 30 MG, UNKNOWN
     Route: 048
     Dates: start: 2013
  2. VYVANSE [Suspect]
     Dosage: 20 MG, UNKNOWN
     Route: 048
     Dates: start: 201304, end: 2013
  3. REACTINE                           /00884302/ [Concomitant]
     Indication: PRODUCT USED FOR UNKNOWN INDICATION
     Dosage: 10 MG, UNKNOWN
     Route: 065

REACTIONS (3)
  - Cyanosis [Recovered/Resolved]
  - Pruritus [Recovered/Resolved]
  - Inflammation [Recovered/Resolved]
